FAERS Safety Report 12569213 (Version 1)
Quarter: 2016Q3

REPORT INFORMATION
  Report Type: Spontaneous
  Country: CA (occurrence: CA)
  Receive Date: 20160719
  Receipt Date: 20160719
  Transmission Date: 20161109
  Serious: Yes (Other)
  Sender: FDA-Public Use
  Company Number: PHHY2016CA096061

PATIENT
  Sex: Male

DRUGS (2)
  1. SPIRONOLACTONE. [Concomitant]
     Active Substance: SPIRONOLACTONE
     Indication: PRODUCT USED FOR UNKNOWN INDICATION
     Route: 065
  2. ENTRESTO [Suspect]
     Active Substance: SACUBITRIL\VALSARTAN
     Indication: PRODUCT USED FOR UNKNOWN INDICATION
     Dosage: 100 MG, (3 X 100MG IN MORNING AND 3 X 100MG IN PM)
     Route: 065
     Dates: end: 20160705

REACTIONS (8)
  - Blood pressure increased [Unknown]
  - Pollakiuria [Recovered/Resolved]
  - Constipation [Recovered/Resolved]
  - Headache [Recovered/Resolved]
  - Intentional overdose [Unknown]
  - Heart rate increased [Unknown]
  - Inappropriate schedule of drug administration [Unknown]
  - Restlessness [Recovered/Resolved]
